FAERS Safety Report 7936694-3 (Version None)
Quarter: 2011Q4

REPORT INFORMATION
  Report Type: 
  Country: None (occurrence: None)
  Receive Date: 20111123
  Receipt Date: 20111111
  Transmission Date: 20120403
  Serious: Yes (Other)
  Sender: FDA-Public Use
  Company Number: JP-PFIZER INC-2011252621

PATIENT
  Age: 49 Year
  Sex: Male

DRUGS (4)
  1. DAUNORUBICIN HCL [Suspect]
     Indication: ACUTE MYELOID LEUKAEMIA
     Dosage: 50 MG/M2 (DAYS 1-3)
     Route: 042
  2. IDARUBICIN HCL [Suspect]
     Indication: ACUTE MYELOID LEUKAEMIA
     Dosage: 12 MG/M2 (DAYS 1-3)
     Route: 042
  3. CYTARABINE [Suspect]
     Dosage: 100 MG/M2, (DAYS 1-5)
  4. CYTARABINE [Suspect]
     Indication: ACUTE MYELOID LEUKAEMIA
     Dosage: 100 MG/M2 (DAYS 1-7)

REACTIONS (4)
  - FEBRILE NEUTROPENIA [None]
  - BACTERIAL SEPSIS [None]
  - CLOSTRIDIAL INFECTION [None]
  - HAEMOLYTIC ANAEMIA [None]
